FAERS Safety Report 11108002 (Version 2)
Quarter: 2018Q4

REPORT INFORMATION
  Report Type: Report from Study
  Country: US (occurrence: US)
  Receive Date: 20150512
  Receipt Date: 20181223
  Transmission Date: 20190204
  Serious: Yes (Hospitalization, Other)
  Sender: FDA-Public Use
  Company Number: US-ACTELION-A-US2015-117576

PATIENT
  Age: 60 Year
  Sex: Female

DRUGS (1)
  1. TRACLEER [Suspect]
     Active Substance: BOSENTAN
     Indication: PULMONARY ARTERIAL HYPERTENSION
     Dosage: UNK
     Route: 048

REACTIONS (10)
  - Myocardial infarction [Unknown]
  - Infective aortitis [Unknown]
  - Coronary artery occlusion [Unknown]
  - Pyrexia [Unknown]
  - Weight decreased [Unknown]
  - Stress [Unknown]
  - Coronary artery bypass [Unknown]
  - Cardiac operation [Unknown]
  - Cellulitis [Unknown]
  - Pulmonary arterial hypertension [Unknown]

NARRATIVE: CASE EVENT DATE: 2014
